FAERS Safety Report 7685755 (Version 2)
Quarter: 2013Q1

REPORT INFORMATION
  Report Type: Report from Study
  Country: US (occurrence: US)
  Receive Date: 20101129
  Receipt Date: 20130115
  Transmission Date: 20140127
  Serious: Yes (Hospitalization)
  Sender: FDA-Public Use
  Company Number: US-AMGEN-USACT2010005956

PATIENT
  Age: 49 Year
  Sex: Female

DRUGS (6)
  1. PEGFILGRASTIM [Suspect]
     Indication: BREAST CANCER
     Dosage: 6 MG, ONE TIME DOSE
     Route: 058
     Dates: start: 20101110, end: 20101110
  2. ADRIAMYCIN                         /00330901/ [Suspect]
     Indication: BREAST CANCER
     Dosage: 106 MG, UNK
     Dates: start: 20101108
  3. CYTOXAN [Suspect]
     Indication: BREAST CANCER
     Dosage: 1056 MG, UNK
     Dates: start: 20101108
  4. ABRAXANE [Suspect]
     Indication: BREAST CANCER
     Dosage: 174 MG, UNK
     Dates: start: 20100510
  5. AVASTIN                            /01555201/ [Suspect]
     Indication: BREAST CANCER
     Dosage: 1085 MG, UNK
     Dates: start: 20100524
  6. CARBOPLATIN [Suspect]
     Indication: BREAST CANCER
     Dosage: 822 MG, UNK
     Dates: start: 20100524

REACTIONS (4)
  - Odynophagia [Recovered/Resolved]
  - Hypersensitivity [Recovered/Resolved]
  - Neutropenia [Recovered/Resolved]
  - Oral candidiasis [Recovered/Resolved]
